FAERS Safety Report 4725071-4 (Version None)
Quarter: 2005Q3

REPORT INFORMATION
  Report Type: 
  Country: None (occurrence: None)
  Receive Date: 20050721
  Receipt Date: 20050718
  Transmission Date: 20060218
  Serious: Yes (Death)
  Sender: FDA-Public Use
  Company Number: 214019

PATIENT
  Age: 70 Year
  Sex: Male

DRUGS (5)
  1. RITUXAN [Suspect]
     Dosage: INTRAVENOUS
     Route: 042
     Dates: start: 20040705, end: 20040831
  2. CYCLOPHOSPHAMIDE [Concomitant]
  3. DOXORUBICIN HCL [Concomitant]
  4. VINCRISTINE [Concomitant]
  5. PREDNISONE [Concomitant]

REACTIONS (2)
  - HERPES ZOSTER [None]
  - PNEUMONIA [None]
